FAERS Safety Report 23644772 (Version 1)
Quarter: 2024Q1

REPORT INFORMATION
  Report Type: Spontaneous
  Country: US (occurrence: US)
  Receive Date: 20240318
  Receipt Date: 20240318
  Transmission Date: 20240410
  Serious: No
  Sender: FDA-Public Use
  Company Number: US-009507513-2403USA000749

PATIENT
  Age: 84 Year
  Sex: Female

DRUGS (1)
  1. JANUMET [Suspect]
     Active Substance: METFORMIN HYDROCHLORIDE\SITAGLIPTIN PHOSPHATE
     Indication: Product used for unknown indication
     Dosage: STRENGHT: 50/1000 MG, 1 TAB (1 DOSAGE FORM) BY MOUTH TWICE A DAY (BID)
     Route: 048

REACTIONS (5)
  - Hypertension [Unknown]
  - Blood glucose increased [Unknown]
  - Product use issue [Unknown]
  - Inability to afford medication [Unknown]
  - Product dose omission issue [Unknown]

NARRATIVE: CASE EVENT DATE: 20240101
